FAERS Safety Report 7231887-5 (Version None)
Quarter: 2011Q1

REPORT INFORMATION
  Report Type: 
  Country: None (occurrence: None)
  Receive Date: 20110118
  Receipt Date: 20110112
  Transmission Date: 20110831
  Serious: Yes (Other)
  Sender: FDA-Public Use
  Company Number: US-ABBOTT-10P-163-0690369-00

PATIENT
  Sex: Female
  Weight: 59.928 kg

DRUGS (3)
  1. SYNTHROID [Suspect]
     Indication: HYPOTHYROIDISM
     Dosage: MON-FRI
     Route: 048
     Dates: start: 20100801
  2. SYNTHROID [Suspect]
     Indication: HYPOTHYROIDISM
     Dosage: SAT AND SUN
     Route: 048
     Dates: start: 20080101
  3. PRENATAL VITAMINS [Concomitant]
     Indication: VITAMIN SUPPLEMENTATION
     Route: 048

REACTIONS (4)
  - DYSGEUSIA [None]
  - ENDOMETRIOSIS [None]
  - INFERTILITY [None]
  - LUTEAL PHASE DEFICIENCY [None]
